FAERS Safety Report 17036232 (Version 1)
Quarter: 2019Q4

REPORT INFORMATION
  Report Type: Spontaneous
  Country: CA (occurrence: CA)
  Receive Date: 20191115
  Receipt Date: 20191115
  Transmission Date: 20200122
  Serious: Yes (Other)
  Sender: FDA-Public Use
  Company Number: CA-ROCHE-2462021

PATIENT
  Age: 76 Year
  Sex: Female

DRUGS (33)
  1. ARAVA [Suspect]
     Active Substance: LEFLUNOMIDE
     Indication: PRODUCT USED FOR UNKNOWN INDICATION
     Route: 065
  2. DARIFENACIN. [Concomitant]
     Active Substance: DARIFENACIN
  3. DESOXIMETASONE. [Concomitant]
     Active Substance: DESOXIMETASONE
  4. VAGIFEM [Concomitant]
     Active Substance: ESTRADIOL
  5. CODEINE [Concomitant]
     Active Substance: CODEINE
  6. DIPHENHYDRAMINE. [Concomitant]
     Active Substance: DIPHENHYDRAMINE
  7. METHOTREXATE. [Suspect]
     Active Substance: METHOTREXATE
     Indication: PRODUCT USED FOR UNKNOWN INDICATION
     Route: 065
  8. ANAKINRA [Concomitant]
     Active Substance: ANAKINRA
     Route: 065
  9. ACTEMRA [Suspect]
     Active Substance: TOCILIZUMAB
     Indication: PRODUCT USED FOR UNKNOWN INDICATION
     Route: 065
  10. HYDROXYCHLOROQUINE SULFATE. [Suspect]
     Active Substance: HYDROXYCHLOROQUINE SULFATE
     Indication: PRODUCT USED FOR UNKNOWN INDICATION
     Route: 065
  11. KADIAN [Concomitant]
     Active Substance: MORPHINE SULFATE
  12. LOPERAMIDE [Concomitant]
     Active Substance: LOPERAMIDE
  13. RESTASIS [Concomitant]
     Active Substance: CYCLOSPORINE
  14. SYNTHROID [Concomitant]
     Active Substance: LEVOTHYROXINE SODIUM
  15. URISPAS [Concomitant]
     Active Substance: FLAVOXATE HYDROCHLORIDE
     Route: 065
  16. ENBREL [Suspect]
     Active Substance: ETANERCEPT
     Indication: RHEUMATOID ARTHRITIS
     Route: 065
  17. HUMIRA [Suspect]
     Active Substance: ADALIMUMAB
     Indication: PRODUCT USED FOR UNKNOWN INDICATION
     Route: 058
  18. ACETAMINOPHEN. [Concomitant]
     Active Substance: ACETAMINOPHEN
  19. ATIVAN [Concomitant]
     Active Substance: LORAZEPAM
  20. DILAUDID [Concomitant]
     Active Substance: HYDROMORPHONE HYDROCHLORIDE
  21. HYDROMORPHONE [Concomitant]
     Active Substance: HYDROMORPHONE
  22. KENALOG [Concomitant]
     Active Substance: TRIAMCINOLONE ACETONIDE
     Route: 065
  23. XELJANZ [Suspect]
     Active Substance: TOFACITINIB CITRATE
     Indication: PRODUCT USED FOR UNKNOWN INDICATION
     Route: 065
  24. NORFLEX [Concomitant]
     Active Substance: ORPHENADRINE CITRATE
  25. OXYNEO [Concomitant]
     Active Substance: OXYCODONE
  26. PANTOPRAZOLE SODIUM. [Concomitant]
     Active Substance: PANTOPRAZOLE SODIUM
  27. REMICADE [Suspect]
     Active Substance: INFLIXIMAB
     Indication: PRODUCT USED FOR UNKNOWN INDICATION
     Route: 042
  28. OMNARIS [Concomitant]
     Active Substance: CICLESONIDE
  29. TRIMETHOPRIM. [Concomitant]
     Active Substance: TRIMETHOPRIM
  30. ORENCIA [Suspect]
     Active Substance: ABATACEPT
     Indication: PRODUCT USED FOR UNKNOWN INDICATION
     Route: 065
  31. SODIUM AUROTHIOMALATE [Suspect]
     Active Substance: GOLD SODIUM THIOMALATE
     Indication: PRODUCT USED FOR UNKNOWN INDICATION
     Route: 065
  32. RITUXAN [Concomitant]
     Active Substance: RITUXIMAB
     Route: 042
  33. FUROSEMIDE. [Concomitant]
     Active Substance: FUROSEMIDE

REACTIONS (16)
  - Anaemia [Unknown]
  - Herpes zoster [Unknown]
  - Leukopenia [Unknown]
  - Fibromyalgia [Unknown]
  - Pneumonia viral [Unknown]
  - Soft tissue disorder [Unknown]
  - Synovitis [Unknown]
  - Infection [Unknown]
  - Joint swelling [Unknown]
  - Peripheral swelling [Unknown]
  - Therapeutic product effect incomplete [Unknown]
  - Arthralgia [Unknown]
  - Arthritis [Unknown]
  - Drug ineffective [Unknown]
  - Liver function test abnormal [Unknown]
  - Blood cholesterol increased [Unknown]
